FAERS Safety Report 16811698 (Version 1)
Quarter: 2019Q3

REPORT INFORMATION
  Report Type: Spontaneous
  Country: US (occurrence: US)
  Receive Date: 20190916
  Receipt Date: 20190916
  Transmission Date: 20191005
  Serious: No
  Sender: FDA-Public Use
  Company Number: US-PFIZER INC-2017439129

PATIENT
  Age: 72 Year
  Sex: Female
  Weight: 64 kg

DRUGS (2)
  1. SKELAXIN [Suspect]
     Active Substance: METAXALONE
     Indication: BACK PAIN
     Dosage: 800MG TABLET, EVERY 8 HOURS AS NEEDED
     Route: 048
  2. SKELAXIN [Suspect]
     Active Substance: METAXALONE
     Indication: NECK PAIN

REACTIONS (1)
  - Vision blurred [Unknown]
